FAERS Safety Report 14576992 (Version 2)
Quarter: 2019Q4

REPORT INFORMATION
  Report Type: Spontaneous
  Country: IL (occurrence: IL)
  Receive Date: 20180227
  Receipt Date: 20191023
  Transmission Date: 20200122
  Serious: Yes (Hospitalization)
  Sender: FDA-Public Use
  Company Number: PHHY2018IL027114

PATIENT
  Age: 26 Year
  Sex: Female

DRUGS (1)
  1. METHOTREXATE. [Suspect]
     Active Substance: METHOTREXATE
     Indication: ECTOPIC PREGNANCY
     Dosage: 78 MG, UNK
     Route: 030

REACTIONS (6)
  - Pain [Recovering/Resolving]
  - Neurological decompensation [Recovering/Resolving]
  - Product use in unapproved indication [Unknown]
  - Myelitis transverse [Recovering/Resolving]
  - Paraesthesia [Recovering/Resolving]
  - Hyporeflexia [Recovering/Resolving]
